FAERS Safety Report 10405494 (Version 1)
Quarter: 2014Q3

REPORT INFORMATION
  Report Type: Spontaneous
  Country: US (occurrence: None)
  Receive Date: 20140822
  Receipt Date: 20140822
  Transmission Date: 20150326
  Serious: Yes (Death)
  Sender: FDA-Public Use
  Company Number: None

PATIENT
  Age: 65 Year
  Sex: Female

DRUGS (2)
  1. TACROLIMUS. [Suspect]
     Active Substance: TACROLIMUS
     Indication: TRANSPLANT
     Dosage: 1 CAPSULE BID ORAL
     Route: 048
     Dates: start: 20121127, end: 20140816
  2. MYCOPHENOLATE [Suspect]
     Active Substance: MYCOPHENOLIC ACID
     Indication: TRANSPLANT
     Dosage: 2 CAPSULES QAM AND QPM ORAL
     Route: 048
     Dates: start: 20121127, end: 20140816

REACTIONS (2)
  - Aortic dissection [None]
  - Cerebrovascular accident [None]

NARRATIVE: CASE EVENT DATE: 20140816
